FAERS Safety Report 6068724-0 (Version None)
Quarter: 2009Q1

REPORT INFORMATION
  Report Type: 
  Country: None (occurrence: None)
  Receive Date: 20090206
  Receipt Date: 20090127
  Transmission Date: 20090719
  Serious: Yes (Other)
  Sender: FDA-Public Use
  Company Number: B0557727A

PATIENT
  Age: 46 Year
  Sex: Male

DRUGS (2)
  1. LAMIVUDINE [Suspect]
  2. ADEFOVIR DIPIVOXIL KIT [Suspect]

REACTIONS (4)
  - ALANINE AMINOTRANSFERASE ABNORMAL [None]
  - BLOOD BILIRUBIN INCREASED [None]
  - HEPATITIS B DNA INCREASED [None]
  - NO THERAPEUTIC RESPONSE [None]
